FAERS Safety Report 5092603-9 (Version None)
Quarter: 2006Q3

REPORT INFORMATION
  Report Type: 
  Country: None (occurrence: None)
  Receive Date: 20060727
  Receipt Date: 20060613
  Transmission Date: 20061208
  Serious: Yes (Other)
  Sender: FDA-Public Use
  Company Number: 2006075925

PATIENT
  Age: 75 Year
  Sex: Male

DRUGS (4)
  1. LYRICA [Suspect]
     Indication: ILL-DEFINED DISORDER
     Dosage: 150 MG (75 MG,2 IN 1 D)
     Dates: start: 20060605
  2. LIPITOR [Concomitant]
  3. DOXAZOSIN (DOXAZOSIN) [Concomitant]
  4. BENAZEPRIL (BENAZEPRIL) [Concomitant]

REACTIONS (1)
  - OEDEMA PERIPHERAL [None]
